FAERS Safety Report 9418748 (Version 1)
Quarter: 2013Q3

REPORT INFORMATION
  Report Type: Spontaneous
  Country: US (occurrence: US)
  Receive Date: 20130725
  Receipt Date: 20130725
  Transmission Date: 20140515
  Serious: No
  Sender: FDA-Public Use
  Company Number: US-PFIZER INC-2013215013

PATIENT
  Age: 13 Year
  Sex: Male
  Weight: 47.62 kg

DRUGS (1)
  1. GENOTROPIN MQ [Suspect]
     Indication: GROWTH HORMONE DEFICIENCY
     Dosage: UNK, SIX SHOTS A WEEK
     Route: 058
     Dates: start: 2013

REACTIONS (1)
  - Administration site pain [Unknown]
